FAERS Safety Report 14229716 (Version 5)
Quarter: 2019Q1

REPORT INFORMATION
  Report Type: Report from Study
  Country: US (occurrence: US)
  Receive Date: 20171128
  Receipt Date: 20190322
  Transmission Date: 20190417
  Serious: Yes (Hospitalization, Other)
  Sender: FDA-Public Use
  Company Number: PHEH2017US037690

PATIENT
  Age: 76 Year
  Sex: Female

DRUGS (1)
  1. GLEEVEC [Suspect]
     Active Substance: IMATINIB MESYLATE
     Indication: CHRONIC MYELOID LEUKAEMIA
     Dosage: UNK
     Route: 065

REACTIONS (16)
  - Gait disturbance [Unknown]
  - Second primary malignancy [Unknown]
  - Osteoporosis [Unknown]
  - Hip fracture [Unknown]
  - Colon cancer [Unknown]
  - Memory impairment [Unknown]
  - Bone pain [Unknown]
  - Myocardial infarction [Unknown]
  - Lower limb fracture [Unknown]
  - Arthralgia [Unknown]
  - Fall [Unknown]
  - Diverticulitis [Unknown]
  - Abdominal pain upper [Unknown]
  - Malaise [Unknown]
  - Pain [Unknown]
  - Depression [Unknown]

NARRATIVE: CASE EVENT DATE: 20171120
